APPROVED DRUG PRODUCT: BUTISOL SODIUM
Active Ingredient: BUTABARBITAL SODIUM
Strength: 30MG
Dosage Form/Route: TABLET;ORAL
Application: N000793 | Product #004
Applicant: PHARMOBEDIENT CONSULTING LLC
Approved: Approved Prior to Jan 1, 1982 | RLD: Yes | RS: No | Type: DISCN